FAERS Safety Report 10355343 (Version 2)
Quarter: 2014Q3

REPORT INFORMATION
  Report Type: Spontaneous
  Country: US (occurrence: US)
  Receive Date: 20140731
  Receipt Date: 20140806
  Transmission Date: 20150326
  Serious: Yes (Other)
  Sender: FDA-Public Use
  Company Number: US-PFIZER INC-2014213136

PATIENT
  Age: 62 Year
  Sex: Male
  Weight: 118 kg

DRUGS (1)
  1. CORDARONE [Suspect]
     Active Substance: AMIODARONE HYDROCHLORIDE
     Indication: ATRIAL FIBRILLATION
     Dosage: 800 MG, 1X/DAY
     Route: 048
     Dates: start: 201211, end: 20140720

REACTIONS (3)
  - Mobility decreased [Not Recovered/Not Resolved]
  - Laboratory test abnormal [Not Recovered/Not Resolved]
  - Gait disturbance [Not Recovered/Not Resolved]
